FAERS Safety Report 15582998 (Version 1)
Quarter: 2018Q4

REPORT INFORMATION
  Report Type: Spontaneous
  Country: GR (occurrence: GR)
  Receive Date: 20181103
  Receipt Date: 20181103
  Transmission Date: 20190205
  Serious: Yes (Hospitalization, Other)
  Sender: FDA-Public Use
  Company Number: GR-ACCORD-090633

PATIENT
  Age: 71 Year
  Sex: Male

DRUGS (3)
  1. CYTARABINE/CYTARABINE HYDROCHLORIDE/CYTARABINE OCFOSFATE [Suspect]
     Active Substance: CYTARABINE
     Indication: DIFFUSE LARGE B-CELL LYMPHOMA RECURRENT
     Dosage: HIGHDOSE
  2. METHOTREXATE. [Suspect]
     Active Substance: METHOTREXATE
     Indication: DIFFUSE LARGE B-CELL LYMPHOMA RECURRENT
     Dosage: HD-MTX
  3. RITUXIMAB. [Suspect]
     Active Substance: RITUXIMAB
     Indication: DIFFUSE LARGE B-CELL LYMPHOMA RECURRENT
     Dosage: WEEKLY

REACTIONS (2)
  - Meningoencephalitis viral [Recovered/Resolved]
  - Cytomegalovirus infection [Recovered/Resolved]
